FAERS Safety Report 7979063-2 (Version None)
Quarter: 2011Q4

REPORT INFORMATION
  Report Type: 
  Country: None (occurrence: None)
  Receive Date: 20111214
  Receipt Date: 20111209
  Transmission Date: 20120403
  Serious: Yes (Hospitalization, Other)
  Sender: FDA-Public Use
  Company Number: US-PFIZER INC-2011143967

PATIENT
  Sex: Male

DRUGS (2)
  1. CHANTIX [Suspect]
     Indication: SMOKING CESSATION THERAPY
     Dosage: UNK
     Dates: start: 20080101, end: 20080201
  2. COUMADIN [Concomitant]
     Indication: THROMBOSIS
     Dosage: UNK
     Dates: start: 20070101

REACTIONS (8)
  - AGGRESSION [None]
  - INTENTIONAL OVERDOSE [None]
  - ABNORMAL DREAMS [None]
  - ANXIETY [None]
  - MOOD SWINGS [None]
  - SUICIDE ATTEMPT [None]
  - DEPRESSION [None]
  - IRRITABILITY [None]
